FAERS Safety Report 25665406 (Version 1)
Quarter: 2025Q3

REPORT INFORMATION
  Report Type: Spontaneous
  Country: TW (occurrence: TW)
  Receive Date: 20250811
  Receipt Date: 20250811
  Transmission Date: 20251020
  Serious: Yes (Life-Threatening, Hospitalization, Other)
  Sender: DAIICHI
  Company Number: TW-DSJP-DS-2025-157488-TW

PATIENT
  Age: 64 Year
  Sex: Male

DRUGS (2)
  1. EDOXABAN [Suspect]
     Active Substance: EDOXABAN
     Indication: Mitral valve repair
     Dosage: 60 MG, QD
     Route: 048
     Dates: start: 20241022, end: 20250416
  2. EDOXABAN [Suspect]
     Active Substance: EDOXABAN
     Indication: Tricuspid valve repair

REACTIONS (3)
  - Gastrointestinal haemorrhage [Recovered/Resolved]
  - Hypovolaemic shock [Recovered/Resolved]
  - Acute respiratory failure [Recovered/Resolved]

NARRATIVE: CASE EVENT DATE: 20250416
